FAERS Safety Report 18405074 (Version 1)
Quarter: 2020Q4

REPORT INFORMATION
  Report Type: Report from Study
  Country: BR (occurrence: BR)
  Receive Date: 20201020
  Receipt Date: 20201020
  Transmission Date: 20210114
  Serious: Yes (Other)
  Sender: FDA-Public Use
  Company Number: PHHY2019BR202523

PATIENT
  Age: 48 Year
  Sex: Female

DRUGS (5)
  1. COSENTYX [Suspect]
     Active Substance: SECUKINUMAB
     Indication: ANKYLOSING SPONDYLITIS
     Dosage: 150 MG (1 AMPOULE)
     Route: 065
     Dates: start: 20190614, end: 20190813
  2. COSENTYX [Suspect]
     Active Substance: SECUKINUMAB
     Dosage: UNK
     Route: 065
     Dates: start: 20200702
  3. COSENTYX [Suspect]
     Active Substance: SECUKINUMAB
     Dosage: UNK (END OF AUG 2020)
     Route: 065
     Dates: start: 202008
  4. COSENTYX [Suspect]
     Active Substance: SECUKINUMAB
     Dosage: 300 MG (2 AMPOULES, END OF SEP 2020)
     Route: 065
     Dates: start: 202009
  5. COSENTYX [Suspect]
     Active Substance: SECUKINUMAB
     Dosage: UNK
     Route: 065
     Dates: start: 202010

REACTIONS (7)
  - Headache [Recovered/Resolved]
  - Pain [Not Recovered/Not Resolved]
  - Rhinitis [Unknown]
  - Carpal tunnel syndrome [Not Recovered/Not Resolved]
  - Shock [Recovering/Resolving]
  - Hypersensitivity [Unknown]
  - Therapeutic product effect incomplete [Not Recovered/Not Resolved]

NARRATIVE: CASE EVENT DATE: 201907
